FAERS Safety Report 8065618-6 (Version None)
Quarter: 2011Q4

REPORT INFORMATION
  Report Type: 
  Country: None (occurrence: None)
  Receive Date: 20111221
  Receipt Date: 20110117
  Transmission Date: 20120403
  Serious: Yes (Hospitalization)
  Sender: FDA-Public Use
  Company Number: PHHY2010US89757

PATIENT
  Age: 73 Year
  Sex: Male

DRUGS (2)
  1. EXJADE [Suspect]
     Indication: MYELOFIBROSIS
     Dosage: 1500 MG, QD , ORAL
     Route: 048
     Dates: start: 20101228
  2. INSULIN [Concomitant]

REACTIONS (4)
  - DIARRHOEA [None]
  - HYPOPHAGIA [None]
  - DIABETES MELLITUS INADEQUATE CONTROL [None]
  - ABDOMINAL DISTENSION [None]
